FAERS Safety Report 21529432 (Version 1)
Quarter: 2022Q4

REPORT INFORMATION
  Report Type: Spontaneous
  Country: JP (occurrence: JP)
  Receive Date: 20221031
  Receipt Date: 20221031
  Transmission Date: 20230113
  Serious: Yes (Death)
  Sender: FDA-Public Use
  Company Number: JP-DSJP-DSJ-2022-131857

PATIENT
  Age: 80 Year
  Sex: Male
  Weight: 63.9 kg

DRUGS (4)
  1. ENHERTU [Suspect]
     Active Substance: FAM-TRASTUZUMAB DERUXTECAN-NXKI
     Indication: HER2 positive gastric cancer
     Dosage: 5.12 MG/KG, ONCE EVERY 3 WK
     Route: 041
     Dates: start: 20220805, end: 20220805
  2. ENHERTU [Suspect]
     Active Substance: FAM-TRASTUZUMAB DERUXTECAN-NXKI
     Dosage: 3.8 MG/KG, ONCE EVERY 3 WK
     Route: 041
     Dates: start: 20220909, end: 20220909
  3. ENHERTU [Suspect]
     Active Substance: FAM-TRASTUZUMAB DERUXTECAN-NXKI
     Dosage: 230 MG, ONCE EVERY 3 WK
     Route: 041
     Dates: start: 20221007, end: 20221007
  4. ETIZOLAM [Concomitant]
     Active Substance: ETIZOLAM
     Indication: Stress
     Dosage: UNK
     Route: 048

REACTIONS (7)
  - Pneumonia aspiration [Fatal]
  - Decreased appetite [Recovering/Resolving]
  - Weight decreased [Unknown]
  - Nausea [Unknown]
  - Dyspnoea [Unknown]
  - Malaise [Recovering/Resolving]
  - Underdose [Unknown]

NARRATIVE: CASE EVENT DATE: 20220805
